FAERS Safety Report 5573096-1 (Version None)
Quarter: 2007Q4

REPORT INFORMATION
  Report Type: 
  Country: None (occurrence: None)
  Receive Date: 20071224
  Receipt Date: 20071219
  Transmission Date: 20080405
  Serious: Yes (Hospitalization, Other)
  Sender: FDA-Public Use
  Company Number: PHEH2006US10572

PATIENT
  Age: 31 Year
  Sex: Female
  Weight: 48.072 kg

DRUGS (2)
  1. EXJADE [Suspect]
     Indication: IRON OVERLOAD
     Dosage: 20 MG/KG/DAY
     Route: 048
     Dates: start: 20060717, end: 20060818
  2. FOLIC ACID [Concomitant]
     Dosage: 1 MG, QD

REACTIONS (16)
  - ANAEMIA [None]
  - BLOOD CREATININE INCREASED [None]
  - BLOOD PHOSPHORUS ABNORMAL [None]
  - BLOOD UREA INCREASED [None]
  - CARDIAC MURMUR [None]
  - CARDIOMEGALY [None]
  - CHEST PAIN [None]
  - FATIGUE [None]
  - GALLOP RHYTHM PRESENT [None]
  - HEADACHE [None]
  - HYPERTENSION [None]
  - NAUSEA [None]
  - PAIN [None]
  - PROTEIN URINE PRESENT [None]
  - RENAL FAILURE ACUTE [None]
  - URINE OUTPUT DECREASED [None]
